FAERS Safety Report 5682250-X (Version None)
Quarter: 2008Q1

REPORT INFORMATION
  Report Type: 
  Country: None (occurrence: None)
  Receive Date: 20080326
  Receipt Date: 20080326
  Transmission Date: 20080703
  Serious: Yes (Hospitalization)
  Sender: FDA-Public Use
  Company Number: None

PATIENT
  Sex: Female
  Weight: 161.0269 kg

DRUGS (2)
  1. REMICADE [Suspect]
     Indication: RHEUMATOID ARTHRITIS
     Dosage: 700 MG Q6WKS IV 1/23/08 LAST INFUSION
     Route: 042
     Dates: end: 20080123
  2. DIFLUNISAL [Suspect]
     Indication: RHEUMATOID ARTHRITIS
     Dosage: 500 MG BID PO
     Route: 048
     Dates: start: 20050912

REACTIONS (1)
  - CARDIAC FAILURE CONGESTIVE [None]
